FAERS Safety Report 7896183-1 (Version None)
Quarter: 2011Q4

REPORT INFORMATION
  Report Type: 
  Country: None (occurrence: None)
  Receive Date: 20111106
  Receipt Date: 20110906
  Transmission Date: 20120403
  Serious: No
  Sender: FDA-Public Use
  Company Number: US-AMGEN-USASP2011045558

PATIENT
  Age: 35 Year
  Sex: Female

DRUGS (2)
  1. ENBREL [Suspect]
     Indication: PSORIATIC ARTHROPATHY
     Dosage: 50 MG, QWK
     Dates: start: 20021201, end: 20040101
  2. ENBREL [Suspect]
     Indication: PSORIASIS

REACTIONS (10)
  - GASTRIC BYPASS [None]
  - PSORIASIS [None]
  - WEIGHT ABNORMAL [None]
  - CHONDROPATHY [None]
  - FIBROMYALGIA [None]
  - NEPHROLITHIASIS [None]
  - GALLBLADDER DISORDER [None]
  - NASOPHARYNGITIS [None]
  - ARTHRALGIA [None]
  - BACK PAIN [None]
